FAERS Safety Report 9722020 (Version 1)
Quarter: 2013Q4

REPORT INFORMATION
  Report Type: Spontaneous
  Country: US (occurrence: US)
  Receive Date: 20131202
  Receipt Date: 20131202
  Transmission Date: 20140711
  Serious: No
  Sender: FDA-Public Use
  Company Number: US-BIOGENIDEC-2013BI079778

PATIENT
  Sex: Female

DRUGS (2)
  1. TECFIDERA [Suspect]
     Indication: MULTIPLE SCLEROSIS
     Dates: start: 20130708
  2. TECFIDERA [Suspect]
     Indication: MULTIPLE SCLEROSIS

REACTIONS (8)
  - Diabetes mellitus [Not Recovered/Not Resolved]
  - Visual impairment [Not Recovered/Not Resolved]
  - Weight decreased [Not Recovered/Not Resolved]
  - Spinal pain [Not Recovered/Not Resolved]
  - Central nervous system lesion [Not Recovered/Not Resolved]
  - Multiple sclerosis [Not Recovered/Not Resolved]
  - Pain [Unknown]
  - Abdominal pain upper [Unknown]
